FAERS Safety Report 5670631-X (Version None)
Quarter: 2008Q1

REPORT INFORMATION
  Report Type: 
  Country: None (occurrence: None)
  Receive Date: 20080318
  Receipt Date: 20080310
  Transmission Date: 20080703
  Serious: Yes (Other)
  Sender: FDA-Public Use
  Company Number: US-AVENTIS-200811605US

PATIENT
  Age: 54 Year
  Sex: Female

DRUGS (10)
  1. LANTUS [Suspect]
     Dates: start: 20060101
  2. OPTICLIK (INSULIN INJECTION PEN) [Suspect]
  3. HUMULIN R [Concomitant]
     Dosage: DOSE: UNK
  4. LISINOPRIL [Concomitant]
     Dosage: DOSE: UNK
  5. HYDROCHLOROTHIAZIDE [Concomitant]
     Dosage: DOSE: UNK
  6. TOPROL-XL [Concomitant]
     Dosage: DOSE: UNK
  7. LEXAPRO [Concomitant]
     Dosage: DOSE: UNK
  8. LESCOL [Concomitant]
     Dosage: DOSE: UNK
  9. GEMFIBROZIL [Concomitant]
     Dosage: DOSE: UNK
  10. AUGMENTIN '125' [Concomitant]
     Dosage: DOSE: UNK

REACTIONS (2)
  - CATARACT [None]
  - VITREOUS HAEMORRHAGE [None]
